FAERS Safety Report 4734370-1 (Version None)
Quarter: 2005Q3

REPORT INFORMATION
  Report Type: 
  Country: None (occurrence: None)
  Receive Date: 20050729
  Receipt Date: 20050721
  Transmission Date: 20060218
  Serious: Yes (Hospitalization)
  Sender: FDA-Public Use
  Company Number: 233241K05USA

PATIENT
  Age: 65 Year
  Sex: Male

DRUGS (1)
  1. REBIF [Suspect]
     Indication: MULTIPLE SCLEROSIS
     Dosage: 8.8 MCG
     Dates: start: 20050721, end: 20050701

REACTIONS (4)
  - CONVULSION [None]
  - FEEDING DISORDER [None]
  - MOVEMENT DISORDER [None]
  - SPEECH DISORDER [None]
